FAERS Safety Report 15402260 (Version 1)
Quarter: 2018Q3

REPORT INFORMATION
  Report Type: Spontaneous
  Country: FR (occurrence: FR)
  Receive Date: 20180919
  Receipt Date: 20180919
  Transmission Date: 20181010
  Serious: Yes (Other)
  Sender: FDA-Public Use
  Company Number: FR-PFIZER INC-2018372115

PATIENT
  Age: 52 Year
  Sex: Male

DRUGS (1)
  1. IRINOTECAN HCL [Suspect]
     Active Substance: IRINOTECAN HYDROCHLORIDE
     Indication: NEOPLASM MALIGNANT
     Dosage: UNK
     Route: 042
     Dates: start: 20180614

REACTIONS (3)
  - Speech disorder [Recovered/Resolved]
  - Jaw disorder [Recovered/Resolved with Sequelae]
  - Aphasia [Recovered/Resolved]

NARRATIVE: CASE EVENT DATE: 20180614
